FAERS Safety Report 13956933 (Version 1)
Quarter: 2017Q3

REPORT INFORMATION
  Report Type: Spontaneous
  Country: US (occurrence: US)
  Receive Date: 20170911
  Receipt Date: 20170911
  Transmission Date: 20171128
  Serious: No
  Sender: FDA-Public Use
  Company Number: US-LEXICON PHARMACEUTICALS, INC-17-1606-00772

PATIENT
  Age: 73 Year
  Sex: Female

DRUGS (18)
  1. ALEVE [Concomitant]
  2. LIPITOR [Concomitant]
     Active Substance: ATORVASTATIN CALCIUM
  3. LOMOTIL [Concomitant]
     Active Substance: ATROPINE SULFATE\DIPHENOXYLATE HYDROCHLORIDE
  4. TELOTRISTAT ETHYL [Suspect]
     Active Substance: TELOTRISTAT ETHYL
     Indication: CARCINOID SYNDROME
     Route: 048
     Dates: start: 20170708
  5. CARDURA [Concomitant]
     Active Substance: DOXAZOSIN MESYLATE
  6. QUESTRAN [Concomitant]
  7. AVAPRO [Concomitant]
  8. LIDOCAINE [Concomitant]
  9. BENZOCAINE. [Concomitant]
     Active Substance: BENZOCAINE
  10. FOLIC ACID [Concomitant]
  11. HYDROCORTISONE [Concomitant]
  12. ANUSOL NOS [Concomitant]
     Active Substance: BALSAM PERU\BENZYL BENZOATE\BISMUTH HYDROXIDE\BISMUTH SUBGALLATE\HYDROCORTISONE ACETATE\ZINC OXIDE
  13. CELEBREX [Concomitant]
  14. NORVASC [Concomitant]
  15. LASIX [Concomitant]
  16. OCTREOTIDE. [Concomitant]
     Active Substance: OCTREOTIDE
  17. ROBAXIN [Concomitant]
     Active Substance: METHOCARBAMOL
  18. PRILOSEC [Concomitant]

REACTIONS (2)
  - Arthralgia [Unknown]
  - Bone pain [Unknown]

NARRATIVE: CASE EVENT DATE: 20170708
